FAERS Safety Report 10103789 (Version 1)
Quarter: 2014Q2

REPORT INFORMATION
  Report Type: Spontaneous
  Country: US (occurrence: FR)
  Receive Date: 20140424
  Receipt Date: 20140424
  Transmission Date: 20141212
  Serious: Yes (Hospitalization)
  Sender: FDA-Public Use
  Company Number: FR-FRI-1000066790

PATIENT
  Age: 56 Year
  Sex: Female

DRUGS (1)
  1. ASENAPINE [Suspect]
     Indication: SCHIZOAFFECTIVE DISORDER
     Route: 060

REACTIONS (1)
  - Psychiatric decompensation [Unknown]
